FAERS Safety Report 13382106 (Version 8)
Quarter: 2020Q2

REPORT INFORMATION
  Report Type: Report from Study
  Country: FR (occurrence: FR)
  Receive Date: 20170329
  Receipt Date: 20200407
  Transmission Date: 20200713
  Serious: Yes (Other)
  Sender: FDA-Public Use
  Company Number: PHHY2017FR046215

PATIENT
  Age: 50 Year
  Sex: Female

DRUGS (10)
  1. SIGNIFOR LAR [Suspect]
     Active Substance: PASIREOTIDE PAMOATE
     Indication: ACROMEGALY
     Dosage: 40 MG, UNK
     Route: 065
     Dates: start: 20160210
  2. CANDESARTAN. [Concomitant]
     Active Substance: CANDESARTAN
     Indication: HYPERTENSION
     Dosage: 8 MG, UNK
     Route: 048
     Dates: start: 20161128, end: 20170224
  3. KENZEN [Concomitant]
     Active Substance: CANDESARTAN CILEXETIL
     Indication: HYPERTENSION
  4. LEVOTHYROX [Concomitant]
     Active Substance: LEVOTHYROXINE
     Indication: HYPOTHYROIDISM
     Dosage: 150 MG, UNK
     Route: 048
     Dates: start: 20151209, end: 20170321
  5. LEVOTHYROX [Concomitant]
     Active Substance: LEVOTHYROXINE
     Indication: THYROIDECTOMY
  6. KENZEN [Concomitant]
     Active Substance: CANDESARTAN CILEXETIL
     Indication: DIABETES MELLITUS
     Dosage: 16 MG, UNK
     Route: 048
     Dates: start: 20140606, end: 20170321
  7. PARIET [Concomitant]
     Active Substance: RABEPRAZOLE SODIUM
     Indication: GASTROOESOPHAGEAL REFLUX DISEASE
     Dosage: 10 MG, UNK
     Route: 048
     Dates: start: 20131224, end: 20170321
  8. AERIUS (DESLORATADINE) [Concomitant]
     Active Substance: DESLORATADINE
     Indication: HYPERSENSITIVITY
     Dosage: 5 MG, UNK
     Route: 048
     Dates: start: 20131224, end: 20170321
  9. BEPANTHEN [Concomitant]
     Indication: DERMATITIS ATOPIC
     Dosage: 100 MG, UNK
     Route: 061
     Dates: start: 20160511, end: 20170503
  10. UVEDOSE [Concomitant]
     Active Substance: CHOLECALCIFEROL
     Indication: OSTEOPENIA
     Dosage: 100000 OT, UNK
     Route: 048
     Dates: start: 20161128, end: 20170224

REACTIONS (7)
  - Nausea [Unknown]
  - Asthenia [Unknown]
  - Dyspepsia [Unknown]
  - Alopecia [Unknown]
  - Headache [Unknown]
  - Diabetes mellitus [Not Recovered/Not Resolved]
  - Arthralgia [Unknown]

NARRATIVE: CASE EVENT DATE: 20160210
